FAERS Safety Report 15023210 (Version 1)
Quarter: 2018Q2

REPORT INFORMATION
  Report Type: Spontaneous
  Country: US (occurrence: US)
  Receive Date: 20180524
  Receipt Date: 20180524
  Transmission Date: 20180711
  Serious: Yes (Death)
  Sender: FDA-Public Use
  Company Number: None

PATIENT
  Age: 61 Year
  Sex: Male

DRUGS (1)
  1. MAVYRET [Suspect]
     Active Substance: GLECAPREVIR\PIBRENTASVIR
     Dosage: 100MG-40 MG 3 TABLETS DAILY BY MOUTH
     Route: 048
     Dates: start: 20180424

REACTIONS (1)
  - Death [None]

NARRATIVE: CASE EVENT DATE: 20180519
